FAERS Safety Report 23884506 (Version 1)
Quarter: 2024Q2

REPORT INFORMATION
  Report Type: Spontaneous
  Country: US (occurrence: US)
  Receive Date: 20240522
  Receipt Date: 20240522
  Transmission Date: 20240716
  Serious: No
  Sender: FDA-Public Use
  Company Number: US-PFIZER INC-202400135736

PATIENT
  Age: 44 Year
  Sex: Female
  Weight: 58.06 kg

DRUGS (1)
  1. PROVERA [Suspect]
     Active Substance: MEDROXYPROGESTERONE ACETATE
     Indication: Hormone replacement therapy
     Dosage: 5 MG, 1X/DAY
     Route: 048
     Dates: start: 20240412, end: 20240517

REACTIONS (10)
  - Insomnia [Unknown]
  - Palpitations [Not Recovered/Not Resolved]
  - Brain fog [Not Recovered/Not Resolved]
  - Disturbance in attention [Unknown]
  - Headache [Not Recovered/Not Resolved]
  - Depression [Unknown]
  - Anxiety [Unknown]
  - Confusional state [Not Recovered/Not Resolved]
  - Fatigue [Not Recovered/Not Resolved]
  - Off label use [Unknown]
